FAERS Safety Report 13528821 (Version 1)
Quarter: 2017Q2

REPORT INFORMATION
  Report Type: Spontaneous
  Country: NL (occurrence: NL)
  Receive Date: 20170509
  Receipt Date: 20170509
  Transmission Date: 20170830
  Serious: Yes (Death, Hospitalization, Other)
  Sender: FDA-Public Use
  Company Number: NL-PFIZER INC-2017198533

PATIENT
  Age: 60 Year
  Sex: Male
  Weight: 100 kg

DRUGS (3)
  1. ZYPREXA [Concomitant]
     Active Substance: OLANZAPINE
     Dosage: 2.5 MG, UNK
     Route: 048
  2. LITHIUMCARBONAAT PCH TABLET 400MG [Interacting]
     Active Substance: LITHIUM CARBONATE
     Indication: BIPOLAR DISORDER
     Dosage: 1 DF, UNK
     Route: 048
     Dates: start: 2005, end: 201702
  3. VENLAFAXINE HCL [Suspect]
     Active Substance: VENLAFAXINE HYDROCHLORIDE
     Indication: BIPOLAR DISORDER
     Dosage: 75 MG, 1X/DAY
     Route: 048
     Dates: start: 2005, end: 201702

REACTIONS (6)
  - Lung infection [Unknown]
  - Serotonin syndrome [Unknown]
  - Drug interaction [Unknown]
  - Cardiac arrest [Fatal]
  - Hypertension [Unknown]
  - Renal failure [Unknown]

NARRATIVE: CASE EVENT DATE: 20170113
